FAERS Safety Report 12269171 (Version 1)
Quarter: 2016Q2

REPORT INFORMATION
  Report Type: Spontaneous
  Country: GR (occurrence: GR)
  Receive Date: 20160414
  Receipt Date: 20160414
  Transmission Date: 20160815
  Serious: Yes (Other)
  Sender: FDA-Public Use
  Company Number: GR-ABBVIE-16P-066-1602558-00

PATIENT
  Age: 85 Year
  Sex: Female

DRUGS (2)
  1. CHIROCAINE [Suspect]
     Active Substance: LEVOBUPIVACAINE HYDROCHLORIDE
     Indication: HIP FRACTURE
  2. CHIROCAINE [Suspect]
     Active Substance: LEVOBUPIVACAINE HYDROCHLORIDE
     Indication: ANAESTHETIC PREMEDICATION
     Route: 065
     Dates: start: 20160404, end: 20160404

REACTIONS (2)
  - Drug effect delayed [Recovered/Resolved]
  - Monoplegia [Recovered/Resolved]
